FAERS Safety Report 9202234 (Version 1)
Quarter: 2013Q2

REPORT INFORMATION
  Report Type: Spontaneous
  Country: NL (occurrence: NL)
  Receive Date: 20130401
  Receipt Date: 20130401
  Transmission Date: 20140414
  Serious: Yes (Hospitalization, Other)
  Sender: FDA-Public Use
  Company Number: NL-AMGEN-NLDSP2013021381

PATIENT
  Age: 66 Year
  Sex: Female

DRUGS (4)
  1. NEULASTA [Suspect]
     Indication: PRODUCT USED FOR UNKNOWN INDICATION
     Dosage: 6 MG, Q4WK
     Route: 058
     Dates: start: 20121221
  2. CHEMOTHERAPEUTICS [Concomitant]
     Indication: BREAST CANCER
     Dosage: UNK
  3. DEXAMETHASON                       /00016001/ [Concomitant]
     Dosage: UNK
  4. RABEPRAZOLE SODIUM [Concomitant]
     Dosage: UNK

REACTIONS (3)
  - Breast swelling [Unknown]
  - Mastitis [Unknown]
  - Drug hypersensitivity [Unknown]
